FAERS Safety Report 6022749-X (Version None)
Quarter: 2008Q4

REPORT INFORMATION
  Report Type: 
  Country: None (occurrence: None)
  Receive Date: 20081230
  Receipt Date: 20081224
  Transmission Date: 20090506
  Serious: Yes (Other)
  Sender: FDA-Public Use
  Company Number: CO-AVENTIS-200811910GDDC

PATIENT
  Age: 35 Year
  Sex: Female

DRUGS (1)
  1. ARAVA [Suspect]
     Indication: RHEUMATOID ARTHRITIS
     Route: 048
     Dates: start: 20060909, end: 20080221

REACTIONS (2)
  - PREMATURE SEPARATION OF PLACENTA [None]
  - PROCEDURAL COMPLICATION [None]
